FAERS Safety Report 7733693-1 (Version None)
Quarter: 2011Q3

REPORT INFORMATION
  Report Type: 
  Country: None (occurrence: None)
  Receive Date: 20110902
  Receipt Date: 20110902
  Transmission Date: 20111222
  Serious: Yes (Life-Threatening, Hospitalization, Disabling)
  Sender: FDA-Public Use
  Company Number: None

PATIENT
  Age: 50 Year
  Sex: Male

DRUGS (3)
  1. CLONIDINE [Suspect]
     Indication: BLOOD PRESSURE
     Dosage: WKLY PATCH
  2. DILANTIN [Concomitant]
  3. SIMVASTATIN [Suspect]
     Dosage: SIMVASTATIN 80 MG TABLET DAILY

REACTIONS (8)
  - MYALGIA [None]
  - RENAL DISORDER [None]
  - VASCULAR RUPTURE [None]
  - ABASIA [None]
  - DYSPNOEA [None]
  - CARDIAC FAILURE [None]
  - CEREBROVASCULAR ACCIDENT [None]
  - MUSCLE INJURY [None]
